FAERS Safety Report 9702644 (Version 1)
Quarter: 2013Q4

REPORT INFORMATION
  Report Type: Spontaneous
  Country: US (occurrence: US)
  Receive Date: 20131121
  Receipt Date: 20131121
  Transmission Date: 20140711
  Serious: Yes (Death, Other)
  Sender: FDA-Public Use
  Company Number: US-BAXTER-2013BAX045722

PATIENT
  Age: 37 Year
  Sex: Male

DRUGS (3)
  1. OSMITROL INJECTION (MANNITOL INJECTION, USP) [Suspect]
     Indication: LIVER DISORDER
     Dosage: 220 GM
     Route: 042
  2. OSMITROL INJECTION (MANNITOL INJECTION, USP) [Suspect]
     Indication: RENAL FAILURE
     Dosage: 100 GM
     Route: 042
  3. OSMITROL INJECTION (MANNITOL INJECTION, USP) [Suspect]
     Indication: HEPATIC CIRRHOSIS

REACTIONS (3)
  - Death [Fatal]
  - Hypernatraemia [Unknown]
  - Hyperosmolar state [Unknown]
